FAERS Safety Report 6140757-5 (Version None)
Quarter: 2009Q2

REPORT INFORMATION
  Report Type: 
  Country: None (occurrence: None)
  Receive Date: 20090402
  Receipt Date: 20090402
  Transmission Date: 20091009
  Serious: Yes (Other)
  Sender: FDA-Public Use
  Company Number: PHHO2008FR11134

PATIENT
  Sex: Female
  Weight: 62 kg

DRUGS (1)
  1. CGS 20267 T30748+ [Suspect]
     Indication: BREAST CANCER
     Dosage: 2.5 MG, QD
     Route: 048
     Dates: start: 20001109, end: 20061110

REACTIONS (2)
  - DEMENTIA ALZHEIMER'S TYPE [None]
  - GENERAL PHYSICAL HEALTH DETERIORATION [None]
